FAERS Safety Report 16101211 (Version 1)
Quarter: 2019Q1

REPORT INFORMATION
  Report Type: Spontaneous
  Country: DE (occurrence: DE)
  Receive Date: 20190321
  Receipt Date: 20190321
  Transmission Date: 20190418
  Serious: Yes (Other)
  Sender: FDA-Public Use
  Company Number: DE-PFIZER INC-2019118959

PATIENT
  Age: 41 Year
  Sex: Female
  Weight: 100 kg

DRUGS (7)
  1. LEPONEX [Suspect]
     Active Substance: CLOZAPINE
     Dosage: 350 MG, DAILY (350 [MG/D ]/ INITIAL 225MG/D, INCREASING DOSAGE TO 350MG/D)
     Route: 048
     Dates: end: 20180724
  2. FOLIC ACID. [Concomitant]
     Active Substance: FOLIC ACID
     Indication: VITAMIN SUPPLEMENTATION
     Dosage: 5 MG, DAILY
     Route: 048
     Dates: start: 20180518, end: 20180518
  3. RISPERDAL [Suspect]
     Active Substance: RISPERIDONE
     Indication: SCHIZOAFFECTIVE DISORDER
     Dosage: 2 MG, 1X/DAY
     Route: 048
  4. LEPONEX [Suspect]
     Active Substance: CLOZAPINE
     Indication: SCHIZOAFFECTIVE DISORDER
     Dosage: 225 MG, DAILY (350 [MG/D ]/ INITIAL 225MG/D, INCREASING DOSAGE TO 350MG/D)
     Route: 048
     Dates: start: 20171105
  5. ARIPIPRAZOL [Concomitant]
     Active Substance: ARIPIPRAZOLE
     Indication: SCHIZOAFFECTIVE DISORDER
     Dosage: UNK
     Route: 048
     Dates: start: 20171109, end: 20171109
  6. SERTRALINE HCL [Suspect]
     Active Substance: SERTRALINE HYDROCHLORIDE
     Indication: SCHIZOAFFECTIVE DISORDER
     Dosage: UNK
     Route: 048
     Dates: start: 20171105, end: 20180201
  7. HALOPERIDOL. [Concomitant]
     Active Substance: HALOPERIDOL
     Indication: SCHIZOAFFECTIVE DISORDER
     Dosage: 6 MG, 1X/DAY
     Route: 048
     Dates: start: 20180514, end: 20180724

REACTIONS (2)
  - Polyhydramnios [Recovered/Resolved]
  - Gestational diabetes [Recovered/Resolved]
